FAERS Safety Report 5162933-0 (Version None)
Quarter: 2006Q4

REPORT INFORMATION
  Report Type: 
  Country: None (occurrence: None)
  Receive Date: 20061201
  Receipt Date: 20061120
  Transmission Date: 20070319
  Serious: Yes (Life-Threatening)
  Sender: FDA-Public Use
  Company Number: FR-ROCHE-472152

PATIENT
  Age: 26 Year
  Sex: Female

DRUGS (2)
  1. RIVOTRIL [Suspect]
     Indication: DRUG USE FOR UNKNOWN INDICATION
     Dosage: REPORTED AS RIVOTRIL ROCHE.
     Route: 065
     Dates: end: 20060828
  2. TOPALGIC [Suspect]
     Indication: DRUG USE FOR UNKNOWN INDICATION
     Route: 065
     Dates: end: 20060828

REACTIONS (15)
  - BLOOD LACTIC ACID INCREASED [None]
  - CANDIDIASIS [None]
  - CARDIAC ARREST [None]
  - COMA [None]
  - DYSPNOEA [None]
  - ENCEPHALOPATHY [None]
  - ESCHERICHIA INFECTION [None]
  - GASTROSTOMY [None]
  - HYPOTENSION [None]
  - LARYNGEAL OEDEMA [None]
  - LEUKOENCEPHALOPATHY [None]
  - RESPIRATORY ARREST [None]
  - RHABDOMYOLYSIS [None]
  - SINUS TACHYCARDIA [None]
  - TRACHEOSTOMY [None]
